FAERS Safety Report 6442970-6 (Version None)
Quarter: 2009Q4

REPORT INFORMATION
  Report Type: 
  Country: None (occurrence: None)
  Receive Date: 20091117
  Receipt Date: 20091116
  Transmission Date: 20100525
  Serious: Yes (Hospitalization)
  Sender: FDA-Public Use
  Company Number: US-ROXANE LABORATORIES, INC.-2009-RO-01175RO

PATIENT
  Sex: Male

DRUGS (8)
  1. PREDNISONE [Suspect]
     Indication: RENAL TRANSPLANT
     Dosage: 5 MG
     Route: 048
     Dates: start: 20070330
  2. NEORAL [Suspect]
     Indication: RENAL TRANSPLANT
     Dosage: 250 MG
     Route: 048
     Dates: start: 20080908
  3. CELLCEPT [Suspect]
     Indication: RENAL TRANSPLANT
     Dosage: 2000 MG
     Route: 048
     Dates: start: 20070723
  4. LOPRESSOR [Concomitant]
     Dates: start: 20070316
  5. MULTI-VITAMIN [Concomitant]
     Dates: start: 20070330
  6. DOCUSATE SODIUM [Concomitant]
     Dates: start: 20070719
  7. CLONIDINE [Concomitant]
     Dates: start: 20070719
  8. HYDRALAZINE HCL [Concomitant]
     Dates: start: 20090219

REACTIONS (1)
  - TYPE 1 DIABETES MELLITUS [None]
